FAERS Safety Report 10218191 (Version 1)
Quarter: 2014Q2

REPORT INFORMATION
  Report Type: Spontaneous
  Country: US (occurrence: US)
  Receive Date: 20140605
  Receipt Date: 20140605
  Transmission Date: 20141212
  Serious: No
  Sender: FDA-Public Use
  Company Number: US-BIOGENIDEC-2014BI048408

PATIENT
  Age: 65 Year
  Sex: Female

DRUGS (4)
  1. TECFIDERA [Suspect]
     Indication: MULTIPLE SCLEROSIS
     Route: 048
     Dates: start: 20140122
  2. BUTALBITAL-APAP-CAFFEINE [Concomitant]
  3. GEMFIBROZIL [Concomitant]
  4. KLOR-CON 10 [Concomitant]

REACTIONS (1)
  - Alopecia [Unknown]
